FAERS Safety Report 4390739-9 (Version None)
Quarter: 2004Q3

REPORT INFORMATION
  Report Type: 
  Country: None (occurrence: None)
  Receive Date: 20040706
  Receipt Date: 20040706
  Transmission Date: 20050211
  Serious: Yes (Other)
  Sender: FDA-Public Use
  Company Number: None

PATIENT
  Sex: Female
  Weight: 81.6475 kg

DRUGS (6)
  1. CATAPRES-TTS-1 [Suspect]
     Indication: HYPERTENSION
     Dosage: 1 PATCH WEEKLY
  2. ZOLOFT [Concomitant]
  3. LISINOPRIL [Concomitant]
  4. PLAVIX [Concomitant]
  5. LIPITOR [Concomitant]
  6. HYDROCHLOROTHIAZIDE [Concomitant]

REACTIONS (3)
  - APPLICATION SITE BURNING [None]
  - APPLICATION SITE ERYTHEMA [None]
  - APPLICATION SITE PRURITUS [None]
